FAERS Safety Report 7624062-3 (Version None)
Quarter: 2011Q3

REPORT INFORMATION
  Report Type: 
  Country: None (occurrence: None)
  Receive Date: 20110720
  Receipt Date: 20110707
  Transmission Date: 20111222
  Serious: Yes (Hospitalization, Other)
  Sender: FDA-Public Use
  Company Number: PHHY2011JP28684

PATIENT
  Age: 56 Year
  Sex: Female

DRUGS (4)
  1. CONIEL [Concomitant]
     Dosage: 4 MG
     Route: 048
     Dates: start: 20101210
  2. CODEINE SULFATE [Concomitant]
     Dosage: 60 MG
     Route: 048
     Dates: start: 20110131
  3. AFINITOR [Suspect]
     Indication: METASTATIC RENAL CELL CARCINOMA
     Dosage: 10 MG, DAILY
     Route: 048
     Dates: start: 20110107, end: 20110222
  4. ASTOMIN [Concomitant]
     Dosage: 30 MG
     Route: 048
     Dates: start: 20101022

REACTIONS (2)
  - INFECTION [None]
  - BLOOD LACTATE DEHYDROGENASE INCREASED [None]
